FAERS Safety Report 9731899 (Version 1)
Quarter: 2013Q4

REPORT INFORMATION
  Report Type: Spontaneous
  Country: US (occurrence: US)
  Receive Date: 20131204
  Receipt Date: 20131204
  Transmission Date: 20140711
  Serious: Yes (Hospitalization)
  Sender: FDA-Public Use
  Company Number: PHEH2013US025077

PATIENT
  Sex: Female

DRUGS (2)
  1. TASIGNA [Suspect]
     Dosage: 150 MG, BID
     Route: 048
  2. TASIGNA [Suspect]
     Dosage: UNK
     Route: 048

REACTIONS (2)
  - Myocardial infarction [Recovering/Resolving]
  - Atrial fibrillation [Recovering/Resolving]
